FAERS Safety Report 8214392-9 (Version None)
Quarter: 2012Q1

REPORT INFORMATION
  Report Type: 
  Country: None (occurrence: None)
  Receive Date: 20120316
  Receipt Date: 20120305
  Transmission Date: 20120608
  Serious: Yes (Other)
  Sender: FDA-Public Use
  Company Number: JP-RANBAXY-2012RR-53716

PATIENT

DRUGS (2)
  1. FLUCONAZOLE [Interacting]
     Indication: ANTIFUNGAL TREATMENT
     Dosage: UNK
     Route: 048
  2. VINCRISTINE [Suspect]
     Indication: CHEMOTHERAPY
     Dosage: UNK
     Route: 065

REACTIONS (2)
  - ILEUS PARALYTIC [None]
  - DRUG INTERACTION [None]
